FAERS Safety Report 16596473 (Version 3)
Quarter: 2019Q3

REPORT INFORMATION
  Report Type: Report from Study
  Country: AU (occurrence: AU)
  Receive Date: 20190719
  Receipt Date: 20190923
  Transmission Date: 20191004
  Serious: Yes (Other)
  Sender: FDA-Public Use
  Company Number: PHHO2019AU007539

PATIENT
  Age: 58 Year
  Sex: Female

DRUGS (1)
  1. LEE011 [Suspect]
     Active Substance: RIBOCICLIB
     Indication: BREAST CANCER METASTATIC
     Dosage: 600 MG, QD (FOR 21D Q 28D)
     Route: 048

REACTIONS (3)
  - Alanine aminotransferase increased [Unknown]
  - Haemoglobin decreased [Unknown]
  - Vitiligo [Not Recovered/Not Resolved]

NARRATIVE: CASE EVENT DATE: 20190710
